FAERS Safety Report 9135188 (Version 2)
Quarter: 2013Q2

REPORT INFORMATION
  Report Type: Spontaneous
  Country: US (occurrence: US)
  Receive Date: 20130304
  Receipt Date: 20130422
  Transmission Date: 20140414
  Serious: No
  Sender: FDA-Public Use
  Company Number: US-PFIZER INC-2013075063

PATIENT
  Age: 63 Year
  Sex: Male
  Weight: 145 kg

DRUGS (7)
  1. LYRICA [Suspect]
     Indication: FIBROMYALGIA
     Dosage: 50 MG, 3X/DAY
     Route: 048
     Dates: start: 201302
  2. LYRICA [Suspect]
     Indication: PAIN
  3. METFORMIN HCL [Suspect]
     Indication: DIABETES MELLITUS
     Dosage: 1000 MG, 2X/DAY
  4. CYMBALTA [Suspect]
     Dosage: UNK
  5. NOVOLOG [Suspect]
     Indication: DIABETES MELLITUS
     Dosage: 35 IU, 3X/DAY
  6. LANTUS [Suspect]
     Indication: DIABETES MELLITUS
     Dosage: 70 IU, 1X/DAY
  7. DIOVAN HCT [Suspect]
     Indication: HYPERTENSION
     Dosage: 160/25, MG, 1X/DAY

REACTIONS (3)
  - Amnesia [Unknown]
  - Pre-existing condition improved [Unknown]
  - Therapeutic response unexpected [Not Recovered/Not Resolved]
